FAERS Safety Report 6801095-8 (Version None)
Quarter: 2010Q2

REPORT INFORMATION
  Report Type: 
  Country: None (occurrence: None)
  Receive Date: 20100629
  Receipt Date: 20100621
  Transmission Date: 20101027
  Serious: Yes (Life-Threatening)
  Sender: FDA-Public Use
  Company Number: GXKR2010IN06925

PATIENT
  Age: 20 Year
  Sex: Male

DRUGS (10)
  1. TRAMADOL (NGX) [Suspect]
     Indication: PAIN
     Dosage: 50 MG, UNK
     Route: 042
  2. FENTANYL [Concomitant]
     Indication: GENERAL ANAESTHESIA
     Dosage: 2 MG/KG, UNK
  3. FENTANYL [Concomitant]
     Dosage: 0.5 UG/KG (TOTAL 90 UG AT INDUCTION, 40 UG DURING MAINTENANCE)
  4. PROPOFOL [Concomitant]
     Indication: GENERAL ANAESTHESIA
     Dosage: 2 UG/KG, UNK
  5. VECURONIUM BROMIDE [Concomitant]
     Dosage: 0.1 MG/KG, UNK
  6. OXYGEN [Concomitant]
  7. ISOFLURANE [Concomitant]
  8. NITROUS OXIDE [Concomitant]
  9. NEOSTIGMINE [Concomitant]
     Dosage: 2.5 MG, UNK
  10. GLYCOPYRROLATE [Concomitant]
     Dosage: 0.4 MG, UNK

REACTIONS (3)
  - APNOEA [None]
  - MECHANICAL VENTILATION [None]
  - UNRESPONSIVE TO STIMULI [None]
